FAERS Safety Report 24815227 (Version 2)
Quarter: 2025Q1

REPORT INFORMATION
  Report Type: Report from Study
  Country: CO (occurrence: CO)
  Receive Date: 20250107
  Receipt Date: 20250117
  Transmission Date: 20250409
  Serious: Yes (Other)
  Sender: NOVARTIS
  Company Number: CO-002147023-NVSC2025CO001630

PATIENT
  Age: 72 Year
  Sex: Female
  Weight: 80 kg

DRUGS (2)
  1. COSENTYX [Suspect]
     Active Substance: SECUKINUMAB
     Indication: Ankylosing spondylitis
     Dosage: 150 MG, QMO
     Route: 058
     Dates: start: 20200912
  2. COSENTYX [Suspect]
     Active Substance: SECUKINUMAB
     Route: 065
     Dates: end: 202411

REACTIONS (2)
  - Tuberculin test positive [Unknown]
  - Influenza [Recovered/Resolved]

NARRATIVE: CASE EVENT DATE: 20241201
